FAERS Safety Report 13135902 (Version 2)
Quarter: 2017Q1

REPORT INFORMATION
  Report Type: Spontaneous
  Country: US (occurrence: US)
  Receive Date: 20170120
  Receipt Date: 20170127
  Transmission Date: 20170428
  Serious: Yes (Death, Other)
  Sender: FDA-Public Use
  Company Number: US-BRISTOL-MYERS SQUIBB COMPANY-BMS-2017-002560

PATIENT
  Age: 74 Year
  Sex: Female

DRUGS (1)
  1. OPDIVO [Suspect]
     Active Substance: NIVOLUMAB
     Indication: LUNG NEOPLASM MALIGNANT
     Dosage: UNK
     Route: 042

REACTIONS (49)
  - Brain oedema [Unknown]
  - Diarrhoea [Unknown]
  - Pain in extremity [Unknown]
  - Dysphonia [Unknown]
  - Flushing [Unknown]
  - Arthralgia [Unknown]
  - Muscle spasms [Unknown]
  - Heart rate decreased [Unknown]
  - Heart rate increased [Unknown]
  - Memory impairment [Unknown]
  - Fatigue [Unknown]
  - Heart rate irregular [Unknown]
  - Fall [Unknown]
  - Toxicity to various agents [Unknown]
  - Syncope [Unknown]
  - Feeling cold [Unknown]
  - Hypersomnia [Unknown]
  - Pain [Unknown]
  - Rib fracture [Unknown]
  - Depression [Unknown]
  - Pyrexia [Unknown]
  - Weight decreased [Unknown]
  - Abdominal pain [Unknown]
  - Chills [Unknown]
  - Abdominal pain upper [Unknown]
  - Abdominal distension [Unknown]
  - Nasal congestion [Unknown]
  - Gallbladder disorder [Unknown]
  - Oral mucosal blistering [Unknown]
  - Death [Fatal]
  - Peripheral swelling [Unknown]
  - Cough [Unknown]
  - Renal failure [Unknown]
  - Lung disorder [Unknown]
  - Hepatic failure [Unknown]
  - Atrial fibrillation [Unknown]
  - Constipation [Unknown]
  - Nausea [Unknown]
  - Eye irritation [Unknown]
  - Rhinorrhoea [Unknown]
  - Hepatic mass [Unknown]
  - Dry skin [Unknown]
  - Vomiting [Unknown]
  - Somnolence [Unknown]
  - Musculoskeletal stiffness [Unknown]
  - Oxygen saturation decreased [Unknown]
  - Dizziness [Unknown]
  - Decreased appetite [Unknown]
  - Yellow skin [Unknown]
